FAERS Safety Report 6819442-X (Version None)
Quarter: 2010Q3

REPORT INFORMATION
  Report Type: 
  Country: None (occurrence: None)
  Receive Date: 20100707
  Receipt Date: 20100629
  Transmission Date: 20110219
  Serious: Yes (Other)
  Sender: FDA-Public Use
  Company Number: JP-PFIZER INC-2010081136

PATIENT
  Age: 96 Year
  Sex: Male

DRUGS (2)
  1. UNASYN [Suspect]
     Indication: PNEUMONIA
     Dosage: 6G/ DAY
     Route: 042
     Dates: start: 20100626, end: 20100628
  2. SOLITA-T3 INJECTION [Concomitant]
     Dosage: UNK
     Route: 042
     Dates: start: 20100626, end: 20100628

REACTIONS (1)
  - BLOOD AMYLASE INCREASED [None]
